FAERS Safety Report 8678250 (Version 4)
Quarter: 2013Q1

REPORT INFORMATION
  Report Type: Spontaneous
  Country: TR (occurrence: None)
  Receive Date: 20120705
  Receipt Date: 20130110
  Transmission Date: 20140127
  Serious: Yes (Hospitalization)
  Sender: FDA-Public Use
  Company Number: DSA_58243_2012

PATIENT
  Sex: Male

DRUGS (5)
  1. WELLBUTRIN [Suspect]
     Indication: DEPRESSION
     Dosage: (150 MG ORAL), (300 MG QD, ORAL)
     Route: 048
     Dates: start: 20120514, end: 20120520
  2. LITHIUM CARBONATE [Suspect]
     Indication: BIPOLAR DISORDER
     Dosage: (900 MG ORAL)
     Route: 048
     Dates: start: 20120612, end: 20120627
  3. LAMOTRIGINE (LAMOTRIGINE) [Suspect]
     Indication: BIPOLAR DISORDER
     Dates: start: 2012, end: 2013
  4. DEPAKIN [Concomitant]
  5. SEROQUEL [Concomitant]

REACTIONS (3)
  - Pericardial effusion [None]
  - Venous insufficiency [None]
  - Periorbital oedema [None]
